FAERS Safety Report 13913804 (Version 1)
Quarter: 2017Q3

REPORT INFORMATION
  Report Type: Spontaneous
  Country: US (occurrence: US)
  Receive Date: 20170828
  Receipt Date: 20170828
  Transmission Date: 20171127
  Serious: No
  Sender: FDA-Public Use
  Company Number: US-ROCHE-1140206

PATIENT
  Sex: Male
  Weight: 26.7 kg

DRUGS (3)
  1. NUTROPIN AQ [Suspect]
     Active Substance: SOMATROPIN
     Indication: GROWTH HORMONE DEFICIENCY
     Route: 058
  2. RITALIN [Concomitant]
     Active Substance: METHYLPHENIDATE HYDROCHLORIDE
     Dosage: 10 MG AT 8AM AND 7.5MG AT NOON AND 7.5 MG AT 4PM
     Route: 065
  3. CLARITIN [Concomitant]
     Active Substance: LORATADINE
     Route: 065

REACTIONS (5)
  - Arthralgia [Unknown]
  - Otitis media [Unknown]
  - Contusion [Unknown]
  - Sinus disorder [Unknown]
  - Nocturia [Unknown]

NARRATIVE: CASE EVENT DATE: 1997
